FAERS Safety Report 24181498 (Version 1)
Quarter: 2024Q3

REPORT INFORMATION
  Report Type: Spontaneous
  Country: US (occurrence: US)
  Receive Date: 20240807
  Receipt Date: 20240807
  Transmission Date: 20241017
  Serious: No
  Sender: EMCURE
  Company Number: US-AVET LIFESCIENCES LTD-2024-AVET-000270

PATIENT

DRUGS (3)
  1. TROSPIUM CHLORIDE [Suspect]
     Active Substance: TROSPIUM CHLORIDE
     Indication: Bladder discomfort
     Dosage: 20 MG, BID PO (APPROXIMATELY ONE YEAR)
     Route: 048
  2. TROSPIUM CHLORIDE [Suspect]
     Active Substance: TROSPIUM CHLORIDE
     Indication: Micturition urgency
  3. VITAMIN D3 [Concomitant]
     Active Substance: CHOLECALCIFEROL
     Dosage: NOT ON REGULAR BASIS, WHENEVER SHE REMEMBERS TO TAKE IT
     Route: 065

REACTIONS (2)
  - Cough [Not Recovered/Not Resolved]
  - Vision blurred [Not Recovered/Not Resolved]
